FAERS Safety Report 9413056 (Version 2)
Quarter: 2014Q1

REPORT INFORMATION
  Report Type: Spontaneous
  Country: FR (occurrence: FR)
  Receive Date: 20130722
  Receipt Date: 20140218
  Transmission Date: 20141002
  Serious: Yes (Other)
  Sender: FDA-Public Use
  Company Number: FR-GLAXOSMITHKLINE-B0908283A

PATIENT
  Age: 32 Year
  Sex: Female

DRUGS (4)
  1. ZOPHREN [Suspect]
     Indication: PREMEDICATION
     Route: 042
     Dates: start: 20130425, end: 20130425
  2. DOCETAXEL [Suspect]
     Indication: BREAST CANCER
     Route: 042
     Dates: start: 20130425, end: 20130425
  3. EMEND [Suspect]
     Indication: PREMEDICATION
     Route: 048
     Dates: start: 20130425, end: 20130427
  4. SOLUPRED [Suspect]
     Indication: PREMEDICATION
     Route: 048
     Dates: start: 20130424, end: 20130426

REACTIONS (6)
  - Musculoskeletal pain [Recovered/Resolved]
  - Diarrhoea [Recovered/Resolved]
  - Rash maculo-papular [Recovered/Resolved]
  - Mucosal inflammation [Recovered/Resolved]
  - Vaginal infection [Recovered/Resolved]
  - Abdominal pain [Recovered/Resolved]
